FAERS Safety Report 7222807-8 (Version None)
Quarter: 2011Q1

REPORT INFORMATION
  Report Type: 
  Country: None (occurrence: None)
  Receive Date: 20110106
  Receipt Date: 20110106
  Transmission Date: 20110831
  Serious: Yes (Hospitalization)
  Sender: FDA-Public Use
  Company Number: None

PATIENT
  Age: 77 Year
  Sex: Male

DRUGS (13)
  1. LEVOTHYROXINE [Concomitant]
  2. GABAPENTIN [Concomitant]
  3. HUMALOG [Concomitant]
  4. ASPIRIN [Concomitant]
  5. PANTOPRAZOLE [Concomitant]
  6. BUMETANIDE [Concomitant]
  7. DIGOXIN [Concomitant]
  8. FLUOXETINE [Concomitant]
  9. CLONAZEPAM [Concomitant]
  10. VANCOMYCIN [Suspect]
     Indication: OPEN REDUCTION OF FRACTURE
     Dosage: 2 GRAMS Q18H IVPP RECENT
     Route: 042
  11. CARVEDILOL [Concomitant]
  12. INSULIN [Concomitant]
  13. DOCUSATE NA [Concomitant]

REACTIONS (4)
  - DEHYDRATION [None]
  - RENAL FAILURE ACUTE [None]
  - DRUG LEVEL INCREASED [None]
  - DELIRIUM [None]
